FAERS Safety Report 6328327-7 (Version None)
Quarter: 2009Q3

REPORT INFORMATION
  Report Type: 
  Country: None (occurrence: None)
  Receive Date: 20090825
  Receipt Date: 20090417
  Transmission Date: 20100115
  Serious: No
  Sender: FDA-Public Use
  Company Number: US-ABBOTT-09P-163-0568868-00

PATIENT
  Sex: Female
  Weight: 70.37 kg

DRUGS (4)
  1. SYNTHROID [Suspect]
     Indication: THYROID DISORDER
     Route: 048
     Dates: start: 20090402, end: 20090417
  2. DARVOCET [Concomitant]
     Indication: PAIN
     Route: 048
  3. TYLENOL (CAPLET) [Concomitant]
     Indication: DRUG USE FOR UNKNOWN INDICATION
  4. DALMANE [Concomitant]
     Indication: INSOMNIA

REACTIONS (6)
  - GAIT DISTURBANCE [None]
  - HYPERSOMNIA [None]
  - MUSCULAR WEAKNESS [None]
  - OROPHARYNGEAL PAIN [None]
  - SENSATION OF HEAVINESS [None]
  - THROAT IRRITATION [None]
